FAERS Safety Report 8052944-X (Version None)
Quarter: 2012Q1

REPORT INFORMATION
  Report Type: 
  Country: None (occurrence: None)
  Receive Date: 20120118
  Receipt Date: 20120113
  Transmission Date: 20120608
  Serious: Yes (Hospitalization)
  Sender: FDA-Public Use
  Company Number: DE-AMGEN-DEUCT2012000559

PATIENT
  Age: 67 Year
  Sex: Male
  Weight: 73 kg

DRUGS (15)
  1. METRONIDAZOLE [Concomitant]
     Indication: RASH
     Dosage: UNK UNK, UNK
     Route: 061
     Dates: start: 20110716
  2. VITAMIN B-12 [Concomitant]
     Indication: NEUROPATHY PERIPHERAL
     Dosage: UNK UNK, UNK
     Route: 042
     Dates: start: 20110520
  3. FUCIDINE CAP [Concomitant]
     Indication: RASH
     Dosage: UNK UNK, UNK
     Route: 061
     Dates: start: 20111014
  4. BIFITERAL [Concomitant]
     Indication: CONSTIPATION
     Dosage: UNK UNK, UNK
     Route: 048
     Dates: start: 20111014, end: 20111113
  5. PANITUMUMAB [Suspect]
     Indication: COLORECTAL CANCER METASTATIC
     Dosage: 360 MG, UNK
     Dates: start: 20110520
  6. FOLFOX-4 [Concomitant]
     Indication: COLORECTAL CANCER
     Dosage: UNK MG, UNK
     Dates: start: 20110520, end: 20110915
  7. DOXYCYCLINE [Concomitant]
     Indication: RASH
     Dosage: 100 MG, UNK
     Route: 048
     Dates: start: 20110603
  8. DEXAMETHASONE SODIUM PHOSPHATE [Concomitant]
     Indication: NAUSEA
     Dosage: 4 MG, UNK
     Route: 042
     Dates: start: 20110520
  9. ZOLPIDEM [Concomitant]
     Indication: INSOMNIA
     Dosage: UNK UNK, UNK
     Route: 048
     Dates: start: 20111029, end: 20111029
  10. KEVATRIL [Concomitant]
     Indication: NAUSEA
     Dosage: UNK UNK, UNK
     Route: 042
     Dates: start: 20110520
  11. BETAGALEN [Concomitant]
     Indication: RASH
     Dosage: 1 UNK, UNK
     Route: 061
     Dates: start: 20110712
  12. METOCLOPRAMIDE [Concomitant]
     Indication: NAUSEA
     Dosage: UNK UNK, UNK
     Route: 048
     Dates: start: 20110520
  13. LACTULOSE [Concomitant]
     Dosage: UNK
     Dates: start: 20111014, end: 20111014
  14. SALVIATHYMOL [Concomitant]
     Indication: STOMATITIS
     Dosage: 100 ML, UNK
     Dates: start: 20110520
  15. ENOXAPARIN SODIUM [Concomitant]
     Indication: THROMBOSIS
     Dosage: 0.4 ML, UNK
     Route: 058
     Dates: start: 20111201, end: 20111202

REACTIONS (1)
  - NAIL BED INFLAMMATION [None]
